FAERS Safety Report 23458443 (Version 2)
Quarter: 2024Q1

REPORT INFORMATION
  Report Type: Spontaneous
  Country: US (occurrence: US)
  Receive Date: 20240130
  Receipt Date: 20240131
  Transmission Date: 20240409
  Serious: No
  Sender: FDA-Public Use
  Company Number: US-ABBVIE-5616015

PATIENT

DRUGS (1)
  1. BOTOX COSMETIC [Suspect]
     Active Substance: ONABOTULINUMTOXINA
     Indication: Skin wrinkling
     Dosage: TIME INTERVAL: AS NECESSARY
     Route: 065

REACTIONS (7)
  - Tenderness [Unknown]
  - Swelling [Unknown]
  - Injection site erythema [Unknown]
  - Product preparation error [Unknown]
  - Injection site pain [Unknown]
  - Injection site swelling [Unknown]
  - Injection site papule [Unknown]
